FAERS Safety Report 24121079 (Version 1)
Quarter: 2024Q3

REPORT INFORMATION
  Report Type: Spontaneous
  Country: GB (occurrence: GB)
  Receive Date: 20240722
  Receipt Date: 20240722
  Transmission Date: 20241017
  Serious: Yes (Other)
  Sender: ANI
  Company Number: GB-ANIPHARMA-2024-UK-000133

PATIENT
  Age: 55 Year
  Sex: Female

DRUGS (3)
  1. CANDESARTAN CILEXETIL [Suspect]
     Active Substance: CANDESARTAN CILEXETIL
     Indication: Product used for unknown indication
     Dosage: 16MG ONCE A DAY
     Dates: start: 20240701
  2. METFORMIN [Concomitant]
     Active Substance: METFORMIN HYDROCHLORIDE
  3. ALOGLIPTIN [Concomitant]
     Active Substance: ALOGLIPTIN

REACTIONS (2)
  - Diarrhoea [Unknown]
  - Vertigo [Unknown]

NARRATIVE: CASE EVENT DATE: 20240702
